FAERS Safety Report 19676209 (Version 2)
Quarter: 2021Q4

REPORT INFORMATION
  Report Type: Report from Study
  Country: GB (occurrence: GB)
  Receive Date: 20210809
  Receipt Date: 20211227
  Transmission Date: 20220303
  Serious: Yes (Other)
  Sender: FDA-Public Use
  Company Number: GB-NOVARTISPH-NVSC2021GB174666

PATIENT
  Age: 48 Year
  Sex: Female

DRUGS (3)
  1. METHOTREXATE [Suspect]
     Active Substance: METHOTREXATE
     Indication: Product used for unknown indication
     Dosage: UNKNOWN
     Route: 058
  2. METHOTREXATE [Suspect]
     Active Substance: METHOTREXATE
     Dosage: UNKNOWN
     Route: 048
  3. ETANERCEPT [Suspect]
     Active Substance: ETANERCEPT
     Indication: Rheumatoid arthritis
     Dosage: 50 MG, QW
     Route: 058
     Dates: start: 20210521

REACTIONS (11)
  - Immunodeficiency [Unknown]
  - Rheumatoid arthritis [Unknown]
  - Dizziness [Unknown]
  - Abdominal distension [Unknown]
  - Menopause [Unknown]
  - Illness [Unknown]
  - Poor quality sleep [Unknown]
  - Gastroenteritis viral [Unknown]
  - Malaise [Unknown]
  - Headache [Unknown]
  - Gastrointestinal infection [Unknown]
